FAERS Safety Report 20093290 (Version 1)
Quarter: 2021Q4

REPORT INFORMATION
  Report Type: Spontaneous
  Country: US (occurrence: US)
  Receive Date: 20211120
  Receipt Date: 20211120
  Transmission Date: 20220303
  Serious: Yes (Hospitalization, Other)
  Sender: FDA-Public Use
  Company Number: US-AMGEN-USASP2021178495

PATIENT
  Age: 68 Year
  Sex: Male

DRUGS (1)
  1. REPATHA [Suspect]
     Active Substance: EVOLOCUMAB
     Indication: Blood cholesterol increased
     Dosage: 140 MILLIGRAM, Q2WK
     Route: 065

REACTIONS (4)
  - Bacterial infection [Recovered/Resolved]
  - Sepsis [Unknown]
  - Acute kidney injury [Unknown]
  - Dermatitis acneiform [Unknown]

NARRATIVE: CASE EVENT DATE: 20210101
